FAERS Safety Report 25665247 (Version 1)
Quarter: 2025Q3

REPORT INFORMATION
  Report Type: Spontaneous
  Country: US (occurrence: US)
  Receive Date: 20250811
  Receipt Date: 20250811
  Transmission Date: 20251021
  Serious: Yes (Hospitalization)
  Sender: CHEPLAPHARM
  Company Number: US-CHEPLA-2025009529

PATIENT
  Age: 71 Year
  Sex: Female

DRUGS (9)
  1. HYDROXYUREA [Suspect]
     Active Substance: HYDROXYUREA
  2. HEPARIN [Suspect]
     Active Substance: HEPARIN SODIUM
  3. RASBURICASE [Suspect]
     Active Substance: RASBURICASE
  4. RITUXIMAB [Concomitant]
     Active Substance: RITUXIMAB
     Indication: Burkitt^s lymphoma
  5. ETOPOSIDE [Concomitant]
     Active Substance: ETOPOSIDE
     Indication: Burkitt^s lymphoma
  6. PREDNISONE [Concomitant]
     Active Substance: PREDNISONE
     Indication: Burkitt^s lymphoma
  7. DOXORUBICIN [Concomitant]
     Active Substance: DOXORUBICIN
     Indication: Burkitt^s lymphoma
  8. CYCLOPHOSPHAMIDE [Concomitant]
     Active Substance: CYCLOPHOSPHAMIDE
     Indication: Burkitt^s lymphoma
  9. VINCRISTINE [Concomitant]
     Active Substance: VINCRISTINE
     Indication: Burkitt^s lymphoma

REACTIONS (2)
  - Mental impairment [Recovered/Resolved]
  - Cerebral haematoma [Unknown]
